FAERS Safety Report 6954370-0 (Version None)
Quarter: 2010Q3

REPORT INFORMATION
  Report Type: 
  Country: None (occurrence: None)
  Receive Date: 20100829
  Receipt Date: 20100715
  Transmission Date: 20110219
  Serious: No
  Sender: FDA-Public Use
  Company Number: US-ABBOTT-10P-163-0657867-00

PATIENT
  Sex: Female
  Weight: 98.064 kg

DRUGS (22)
  1. NIASPAN [Suspect]
     Indication: HYPERLIPIDAEMIA
  2. NIASPAN [Suspect]
     Dosage: NIGHTLY
     Route: 048
     Dates: start: 20100615
  3. NIASPAN [Suspect]
  4. NIASPAN [Suspect]
     Indication: PRODUCT USED FOR UNKNOWN INDICATION
  5. CARDURA [Concomitant]
     Indication: PRODUCT USED FOR UNKNOWN INDICATION
  6. BENICAR HCT [Concomitant]
     Indication: PRODUCT USED FOR UNKNOWN INDICATION
  7. ATENOLOL [Concomitant]
     Indication: PRODUCT USED FOR UNKNOWN INDICATION
  8. AMLODOPINE ER [Concomitant]
     Indication: PRODUCT USED FOR UNKNOWN INDICATION
  9. MEGOX [Concomitant]
     Indication: PRODUCT USED FOR UNKNOWN INDICATION
  10. ZINC [Concomitant]
     Indication: PRODUCT USED FOR UNKNOWN INDICATION
  11. GLYBURIDE [Concomitant]
     Indication: PRODUCT USED FOR UNKNOWN INDICATION
  12. OXYBUTIN [Concomitant]
     Indication: PRODUCT USED FOR UNKNOWN INDICATION
  13. LYRICA [Concomitant]
     Indication: PRODUCT USED FOR UNKNOWN INDICATION
  14. SOMA [Concomitant]
     Indication: PRODUCT USED FOR UNKNOWN INDICATION
  15. SINGULAIR [Concomitant]
     Indication: PRODUCT USED FOR UNKNOWN INDICATION
  16. PRO AIR ASVED [Concomitant]
     Indication: PRODUCT USED FOR UNKNOWN INDICATION
  17. FISH OIL [Concomitant]
     Indication: PRODUCT USED FOR UNKNOWN INDICATION
  18. TRAZODONE HCL [Concomitant]
     Indication: PRODUCT USED FOR UNKNOWN INDICATION
     Dosage: AT BEDTIME
  19. NORCO [Concomitant]
     Indication: PRODUCT USED FOR UNKNOWN INDICATION
  20. VOLTAREN [Concomitant]
     Indication: PRODUCT USED FOR UNKNOWN INDICATION
  21. BIETA [Concomitant]
     Indication: PRODUCT USED FOR UNKNOWN INDICATION
  22. ASPIRIN [Concomitant]
     Indication: PRODUCT USED FOR UNKNOWN INDICATION
     Dosage: WITH NIASPAN

REACTIONS (1)
  - FLUSHING [None]
